FAERS Safety Report 7001722-9 (Version None)
Quarter: 2010Q3

REPORT INFORMATION
  Report Type: 
  Country: None (occurrence: None)
  Receive Date: 20100920
  Receipt Date: 20100909
  Transmission Date: 20110219
  Serious: Yes (Hospitalization, Disabling)
  Sender: FDA-Public Use
  Company Number: BR-ASTRAZENECA-2010SE40714

PATIENT
  Age: 80 Year
  Sex: Female
  Weight: 80 kg

DRUGS (8)
  1. ATACAND HCT [Suspect]
     Indication: HYPERTENSION
     Dosage: 16/12.5 MG
     Route: 048
  2. SEROQUEL [Suspect]
     Indication: DEPRESSION
     Route: 048
  3. SEROQUEL [Suspect]
     Indication: RESTLESSNESS
     Route: 048
  4. DEPAKOTE ER [Concomitant]
  5. PONDERA [Concomitant]
  6. RIVOTRIL [Concomitant]
  7. GLUCOSAMINE SULFATE [Concomitant]
  8. CHONDROITIN SULFATE [Concomitant]

REACTIONS (3)
  - CRYING [None]
  - FALL [None]
  - LUMBAR VERTEBRAL FRACTURE [None]
